FAERS Safety Report 10648095 (Version 1)
Quarter: 2014Q4

REPORT INFORMATION
  Report Type: Spontaneous
  Country: US (occurrence: None)
  Receive Date: 20141211
  Receipt Date: 20141211
  Transmission Date: 20150529
  Serious: Yes (Other)
  Sender: FDA-Public Use
  Company Number: None

PATIENT
  Age: 81 Year
  Sex: Female

DRUGS (1)
  1. TRAMADOL [Suspect]
     Active Substance: TRAMADOL
     Indication: PAIN
     Dosage: 2 TABLETS TID ORAL
     Route: 048
     Dates: start: 20141117, end: 20141209

REACTIONS (3)
  - Product quality issue [None]
  - Product substitution issue [None]
  - No therapeutic response [None]

NARRATIVE: CASE EVENT DATE: 20141117
